FAERS Safety Report 6055281-8 (Version None)
Quarter: 2009Q1

REPORT INFORMATION
  Report Type: 
  Country: None (occurrence: None)
  Receive Date: 20090123
  Receipt Date: 20090114
  Transmission Date: 20090719
  Serious: Yes (Hospitalization)
  Sender: FDA-Public Use
  Company Number: ADR0182009

PATIENT
  Age: 73 Year
  Sex: Female

DRUGS (10)
  1. CITALOPRAM HYDROBROMIDE [Suspect]
     Indication: DEPRESSION
     Dosage: 40 MG/DAY, ORAL
     Route: 048
  2. FLUCONAZOLE [Concomitant]
  3. CLONAZEPAM [Concomitant]
  4. LEVOFLOXACIN [Concomitant]
  5. METOPROLOL SUCCINATE [Concomitant]
  6. ACYCLOVIR [Concomitant]
  7. VANCOMYCIN [Concomitant]
  8. AMLODIPINE [Concomitant]
  9. PANTOPRAZOLE [Concomitant]
  10. VALSARTAN [Concomitant]

REACTIONS (6)
  - DELIRIUM [None]
  - DISORIENTATION [None]
  - DRUG INTERACTION [None]
  - NEUTROPENIA [None]
  - SEROTONIN SYNDROME [None]
  - SOMNOLENCE [None]
